FAERS Safety Report 6261423-1 (Version None)
Quarter: 2009Q3

REPORT INFORMATION
  Report Type: 
  Country: None (occurrence: None)
  Receive Date: 20090709
  Receipt Date: 20090706
  Transmission Date: 20100115
  Serious: Yes (Hospitalization)
  Sender: FDA-Public Use
  Company Number: JP-BAYER-200912279BYL

PATIENT
  Age: 49 Year
  Sex: Female
  Weight: 43 kg

DRUGS (8)
  1. CIPROXAN [Suspect]
     Indication: DRUG USE FOR UNKNOWN INDICATION
     Dosage: TOTAL DAILY DOSE: 1200 MG  UNIT DOSE: 200 MG
     Route: 048
     Dates: start: 20090616, end: 20090620
  2. HERCEPTIN [Suspect]
     Indication: DRUG USE FOR UNKNOWN INDICATION
     Route: 041
     Dates: start: 20090616
  3. TEGRETOL [Concomitant]
     Route: 048
  4. FERROMIA [Concomitant]
     Route: 048
  5. MYSTAN [Concomitant]
     Route: 048
  6. LOXOPROFEN [Concomitant]
     Route: 048
  7. ZOMETA [Concomitant]
     Route: 065
  8. NAVELBINE [Concomitant]
     Route: 065

REACTIONS (4)
  - CHEST X-RAY ABNORMAL [None]
  - COMPUTERISED TOMOGRAM ABNORMAL [None]
  - DYSPNOEA [None]
  - PYREXIA [None]
